FAERS Safety Report 21584094 (Version 1)
Quarter: 2022Q4

REPORT INFORMATION
  Report Type: Spontaneous
  Country: US (occurrence: None)
  Receive Date: 20221110
  Receipt Date: 20221110
  Transmission Date: 20230112
  Serious: Yes (Death)
  Sender: FDA-Public Use
  Company Number: None

PATIENT
  Age: 53 Year
  Sex: Female

DRUGS (1)
  1. MYCOPHENOLATE SODIUM [Suspect]
     Active Substance: MYCOPHENOLATE SODIUM
     Indication: Transplant
     Dosage: 720 MG TWICE DAILY BY MOUTH?
     Route: 048
     Dates: start: 20220818, end: 20221104

REACTIONS (1)
  - Death [None]

NARRATIVE: CASE EVENT DATE: 20221104
